FAERS Safety Report 6144489-9 (Version None)
Quarter: 2009Q2

REPORT INFORMATION
  Report Type: 
  Country: None (occurrence: None)
  Receive Date: 20090406
  Receipt Date: 20090330
  Transmission Date: 20091009
  Serious: Yes (Hospitalization)
  Sender: FDA-Public Use
  Company Number: FR-ASTRAZENECA-2009CG00605

PATIENT
  Age: 32042 Day
  Sex: Female

DRUGS (7)
  1. TENORMIN [Suspect]
     Route: 048
     Dates: start: 20071215, end: 20071218
  2. FLECAINE [Suspect]
     Route: 048
     Dates: start: 20071215, end: 20071218
  3. CORDARONE [Suspect]
     Dates: start: 20071201, end: 20071215
  4. CORDARONE [Suspect]
     Dates: start: 20071218
  5. COUMADIN [Concomitant]
     Dates: start: 20071215
  6. KARDEGIC [Concomitant]
  7. IDEOS [Concomitant]

REACTIONS (4)
  - BRADYCARDIA [None]
  - HYPERHIDROSIS [None]
  - MALAISE [None]
  - PALLOR [None]
